FAERS Safety Report 8001610-5 (Version None)
Quarter: 2011Q4

REPORT INFORMATION
  Report Type: 
  Country: None (occurrence: None)
  Receive Date: 20111222
  Receipt Date: 20111213
  Transmission Date: 20120403
  Serious: Yes (Hospitalization, Other)
  Sender: FDA-Public Use
  Company Number: AU-JNJFOC-20111111786

PATIENT
  Sex: Female

DRUGS (8)
  1. REMICADE [Suspect]
     Indication: CROHN'S DISEASE
     Route: 042
     Dates: start: 20111128
  2. PREDNISOLONE [Concomitant]
     Indication: PREMEDICATION
     Dosage: FOR 5 DAYS
     Route: 048
  3. ACETAMINOPHEN [Concomitant]
     Indication: PREMEDICATION
     Route: 065
  4. REMICADE [Suspect]
     Route: 042
     Dates: start: 20111212
  5. PHENERGAN [Concomitant]
     Indication: PREMEDICATION
     Route: 048
  6. REMICADE [Suspect]
     Route: 042
     Dates: start: 20070101
  7. ANTIHISTAMINE [Concomitant]
     Indication: PREMEDICATION
     Route: 065
  8. HYDROCORTISONE [Concomitant]
     Indication: PREMEDICATION
     Route: 042

REACTIONS (9)
  - URTICARIA [None]
  - PALPITATIONS [None]
  - DYSPNOEA [None]
  - FISTULA [None]
  - PRURITUS [None]
  - TACHYCARDIA [None]
  - HYPOTENSION [None]
  - OEDEMA PERIPHERAL [None]
  - INFUSION RELATED REACTION [None]
